FAERS Safety Report 8202402-4 (Version None)
Quarter: 2012Q1

REPORT INFORMATION
  Report Type: 
  Country: None (occurrence: None)
  Receive Date: 20120312
  Receipt Date: 20110711
  Transmission Date: 20120608
  Serious: No
  Sender: FDA-Public Use
  Company Number: US-ABBOTT-11P-163-0838557-00

PATIENT
  Sex: Male
  Weight: 113.5 kg

DRUGS (1)
  1. DEPAKOTE [Suspect]
     Indication: BIPOLAR DISORDER
     Route: 048
     Dates: start: 20100901, end: 20110702

REACTIONS (9)
  - VITAMIN D DECREASED [None]
  - WEIGHT INCREASED [None]
  - DECREASED APPETITE [None]
  - NAUSEA [None]
  - PANIC ATTACK [None]
  - DIZZINESS [None]
  - SUICIDAL IDEATION [None]
  - DRY MOUTH [None]
  - HEADACHE [None]
